FAERS Safety Report 8884074 (Version 4)
Quarter: 2013Q1

REPORT INFORMATION
  Report Type: Spontaneous
  Country: HR (occurrence: HR)
  Receive Date: 20121102
  Receipt Date: 20130220
  Transmission Date: 20140127
  Serious: Yes (Hospitalization, Other)
  Sender: FDA-Public Use
  Company Number: HR-PFIZER INC-2012269232

PATIENT
  Age: 75 Year
  Sex: Male

DRUGS (5)
  1. PANTOPRAZOLE [Suspect]
     Indication: GASTROOESOPHAGEAL REFLUX DISEASE
     Dosage: 20 MG, UNK
     Route: 065
     Dates: start: 2011, end: 2011
  2. ATORVASTATIN CALCIUM [Interacting]
     Indication: HYPERCHOLESTEROLAEMIA
     Dosage: 20 MG, UNK
     Route: 065
     Dates: start: 2011, end: 2011
  3. ACETYLSALICYLIC ACID [Concomitant]
     Indication: ISCHAEMIC STROKE
     Dosage: 100 MG, UNK
     Dates: start: 2011, end: 2011
  4. RAMIPRIL [Concomitant]
     Indication: HYPERCHOLESTEROLAEMIA
     Dosage: 2.5 MG, UNK
     Dates: start: 2011, end: 2011
  5. HALOPERIDOL [Concomitant]
     Dosage: 5 MG, UNK
     Dates: start: 2011, end: 2011

REACTIONS (3)
  - Rhabdomyolysis [Recovered/Resolved]
  - Renal failure acute [Recovered/Resolved]
  - Drug interaction [Unknown]
